FAERS Safety Report 9223564 (Version 3)
Quarter: 2013Q2

REPORT INFORMATION
  Report Type: Spontaneous
  Country: BR (occurrence: BR)
  Receive Date: 20130410
  Receipt Date: 20130606
  Transmission Date: 20140414
  Serious: Yes (Hospitalization, Other)
  Sender: FDA-Public Use
  Company Number: BR-GLAXOSMITHKLINE-A1018775A

PATIENT
  Sex: Male

DRUGS (2)
  1. ARIXTRA [Suspect]
     Indication: PRODUCT USED FOR UNKNOWN INDICATION
     Route: 065
  2. UNFRACTIONATED HEPARIN [Concomitant]

REACTIONS (5)
  - Gastric haemorrhage [Unknown]
  - Cardio-respiratory arrest [Unknown]
  - Incorrect dose administered [Unknown]
  - Overdose [Unknown]
  - Endotracheal intubation [Unknown]
